FAERS Safety Report 4318595-5 (Version None)
Quarter: 2004Q1

REPORT INFORMATION
  Report Type: 
  Country: None (occurrence: None)
  Receive Date: 20040316
  Receipt Date: 20040316
  Transmission Date: 20041129
  Serious: Yes (Other)
  Sender: FDA-Public Use
  Company Number: None

PATIENT
  Age: 55 Year
  Sex: Female
  Weight: 81.1939 kg

DRUGS (1)
  1. ENALAPRIL GENERIC VASOLIC 5 MG [Suspect]
     Indication: HYPERTENSION
     Dosage: 1 QD
     Dates: start: 20030815, end: 20031120

REACTIONS (1)
  - DYSPEPSIA [None]
